FAERS Safety Report 9506490 (Version 4)
Quarter: 2013Q4

REPORT INFORMATION
  Report Type: Report from Study
  Country: DE (occurrence: DE)
  Receive Date: 20130906
  Receipt Date: 20131017
  Transmission Date: 20140711
  Serious: Yes (Hospitalization)
  Sender: FDA-Public Use
  Company Number: PHHY2013DE097611

PATIENT
  Sex: Female
  Weight: 56.9 kg

DRUGS (10)
  1. AFINITOR [Suspect]
     Indication: BREAST CANCER METASTATIC
     Dosage: 10 MG, QD
     Route: 048
     Dates: start: 20130726
  2. ZOMETA [Suspect]
     Dosage: 4 MG, EVERY 4-5 WEEKS
     Dates: start: 20111207, end: 20130822
  3. EXEMESTANE [Concomitant]
     Indication: BREAST CANCER METASTATIC
     Dosage: 25 MG, QD
     Route: 048
     Dates: start: 20130726
  4. TARGIN [Concomitant]
     Dosage: 30 MG, (20 MG+10MG)
     Route: 048
  5. RAMIPRIL [Concomitant]
     Dosage: 5 MG, UNK
     Route: 048
  6. TORSEM [Concomitant]
     Dosage: 10 MG, DAILY
     Route: 048
     Dates: start: 20130921
  7. ASS [Concomitant]
     Dosage: 10 MG, UNK
     Route: 048
  8. SIMVASTATIN [Concomitant]
     Dosage: 20 MG, UNK
     Route: 048
  9. OXAZEPAM [Concomitant]
     Dosage: 10 MG, UNK
     Route: 048
  10. MOVICOL [Concomitant]
     Dosage: UNK UKN, UNK
     Route: 048

REACTIONS (3)
  - Tooth abscess [Recovered/Resolved]
  - Osteitis [Recovered/Resolved]
  - Blood creatinine increased [Not Recovered/Not Resolved]
